FAERS Safety Report 6809611-7 (Version None)
Quarter: 2010Q2

REPORT INFORMATION
  Report Type: 
  Country: None (occurrence: None)
  Receive Date: 20100625
  Receipt Date: 20100614
  Transmission Date: 20101027
  Serious: Yes (Other)
  Sender: FDA-Public Use
  Company Number: 013968

PATIENT
  Sex: Female

DRUGS (1)
  1. KEPPRA [Suspect]
     Indication: CONVULSION
     Dosage: (500 MG BID ORAL)
     Route: 048
     Dates: start: 20071201, end: 20080501

REACTIONS (2)
  - ELECTROCARDIOGRAM QT PROLONGED [None]
  - RENAL FAILURE [None]
